FAERS Safety Report 5670954-4 (Version None)
Quarter: 2008Q1

REPORT INFORMATION
  Report Type: 
  Country: None (occurrence: None)
  Receive Date: 20080318
  Receipt Date: 20080306
  Transmission Date: 20080703
  Serious: Yes (Hospitalization)
  Sender: FDA-Public Use
  Company Number: JP-GILEAD-2008-0015588

PATIENT
  Sex: Male

DRUGS (8)
  1. VIREAD [Suspect]
     Indication: HIV INFECTION
     Route: 048
     Dates: start: 20040419
  2. EPIVIR [Suspect]
     Indication: HIV INFECTION
     Route: 048
     Dates: start: 20040419
  3. EPIVIR [Suspect]
     Route: 048
     Dates: start: 19990220, end: 20040418
  4. REYATAZ [Suspect]
     Indication: HIV INFECTION
     Route: 048
     Dates: start: 20040419
  5. NORVIR [Suspect]
     Indication: HIV INFECTION
     Route: 048
     Dates: start: 20040419
  6. PEGINTERFERON ALFA-2A [Suspect]
     Indication: HEPATITIS C
     Dosage: 1.5 FEG/KG PER WEEK
     Route: 058
     Dates: start: 20021025, end: 20030712
  7. REBETOL [Suspect]
     Indication: HEPATITIS C
     Route: 048
     Dates: start: 20021025, end: 20030712
  8. CROSS EIGHT M (ANTI-HEMOPHILIC GLOBULIN) [Concomitant]
     Route: 065
     Dates: start: 20040401

REACTIONS (1)
  - HYPOAESTHESIA [None]
